FAERS Safety Report 25475197 (Version 3)
Quarter: 2025Q4

REPORT INFORMATION
  Report Type: Report from Study
  Country: US (occurrence: US)
  Receive Date: 20250624
  Receipt Date: 20251031
  Transmission Date: 20260118
  Serious: Yes (Other)
  Sender: ABBVIE
  Company Number: US-ABBVIE-6337507

PATIENT
  Age: 71 Year
  Sex: Male

DRUGS (3)
  1. SKYRIZI [Suspect]
     Active Substance: RISANKIZUMAB-RZAA
     Indication: Psoriasis
     Route: 058
     Dates: start: 20211028
  2. SKYRIZI [Suspect]
     Active Substance: RISANKIZUMAB-RZAA
     Dosage: 150 MILLIGRAM/MILLILITERS
     Route: 058
     Dates: start: 20250703
  3. SKYRIZI [Suspect]
     Active Substance: RISANKIZUMAB-RZAA
     Route: 058

REACTIONS (5)
  - Colorectal cancer recurrent [Not Recovered/Not Resolved]
  - Colorectal cancer stage IV [Unknown]
  - Skin haemorrhage [Unknown]
  - Psoriasis [Not Recovered/Not Resolved]
  - Diarrhoea [Not Recovered/Not Resolved]

NARRATIVE: CASE EVENT DATE: 20220101
